FAERS Safety Report 5278099-2 (Version None)
Quarter: 2007Q1

REPORT INFORMATION
  Report Type: 
  Country: None (occurrence: None)
  Receive Date: 20061213
  Receipt Date: 20051101
  Transmission Date: 20070707
  Serious: No
  Sender: FDA-Public Use
  Company Number: 2005UW16586

PATIENT
  Age: 36 Year
  Sex: Female

DRUGS (5)
  1. SEROQUEL [Suspect]
     Indication: BIPOLAR DISORDER
     Dosage: 400 MG HS PO
     Route: 048
  2. GEODON [Concomitant]
  3. TOPAMAX [Concomitant]
  4. KLONOPIN [Concomitant]
  5. PERCOCET [Concomitant]

REACTIONS (1)
  - WEIGHT INCREASED [None]
